FAERS Safety Report 12764262 (Version 1)
Quarter: 2016Q3

REPORT INFORMATION
  Report Type: Spontaneous
  Country: US (occurrence: US)
  Receive Date: 20160920
  Receipt Date: 20160920
  Transmission Date: 20161109
  Serious: Yes (Hospitalization, Other)
  Sender: FDA-Public Use
  Company Number: US-ABBVIE-16P-163-1732416-00

PATIENT
  Sex: Female

DRUGS (1)
  1. SYNTHROID [Suspect]
     Active Substance: LEVOTHYROXINE SODIUM
     Indication: HYPOTHYROIDISM
     Route: 048
     Dates: start: 1974

REACTIONS (17)
  - Fall [Not Recovered/Not Resolved]
  - Spinal fracture [Recovered/Resolved]
  - Lung neoplasm malignant [Recovered/Resolved]
  - Arteriosclerosis [Unknown]
  - Asthenia [Not Recovered/Not Resolved]
  - Dyspnoea [Recovered/Resolved]
  - Heart rate increased [Not Recovered/Not Resolved]
  - Cataract [Recovered/Resolved]
  - Cyanosis [Recovered/Resolved]
  - Dyspnoea [Recovered/Resolved]
  - Cardiac disorder [Recovered/Resolved]
  - Weight decreased [Not Recovered/Not Resolved]
  - Back injury [Not Recovered/Not Resolved]
  - Glaucoma [Not Recovered/Not Resolved]
  - Road traffic accident [Recovered/Resolved]
  - Nasal cavity cancer [Recovered/Resolved]
  - Neoplasm malignant [Recovered/Resolved]

NARRATIVE: CASE EVENT DATE: 1979
